FAERS Safety Report 9866307 (Version 3)
Quarter: 2015Q1

REPORT INFORMATION
  Report Type: Spontaneous
  Country: US (occurrence: US)
  Receive Date: 20140203
  Receipt Date: 20150216
  Transmission Date: 20150721
  Serious: No
  Sender: FDA-Public Use
  Company Number: US-ALLERGAN-1319463US

PATIENT
  Sex: Female

DRUGS (2)
  1. RESTASIS [Suspect]
     Active Substance: CYCLOSPORINE
     Indication: DRY EYE
     Dosage: 2 GTT, BID
     Route: 047
  2. GLUTATHIONE [Suspect]
     Active Substance: GLUTATHIONE
     Indication: SUPPLEMENTATION THERAPY

REACTIONS (2)
  - Vision blurred [Not Recovered/Not Resolved]
  - Eye pain [Recovered/Resolved]
